FAERS Safety Report 17503065 (Version 3)
Quarter: 2020Q2

REPORT INFORMATION
  Report Type: Report from Study
  Country: US (occurrence: US)
  Receive Date: 20200305
  Receipt Date: 20200410
  Transmission Date: 20200713
  Serious: Yes (Hospitalization)
  Sender: FDA-Public Use
  Company Number: US-REGENERON PHARMACEUTICALS, INC.-2019-47462

PATIENT

DRUGS (5)
  1. AUGMENTIN [Concomitant]
     Active Substance: AMOXICILLIN\CLAVULANATE POTASSIUM
     Indication: DYSPNOEA
     Dosage: 500-125 MG, BID
     Route: 048
     Dates: start: 20190803
  2. COLACE [Concomitant]
     Active Substance: DOCUSATE SODIUM
     Indication: CONSTIPATION
     Dosage: 100 MG, BID
     Route: 048
     Dates: start: 20190716
  3. CEMIPLIMAB [Suspect]
     Active Substance: CEMIPLIMAB
     Indication: BASAL CELL CARCINOMA
     Dosage: 350 MG, Q3W
     Route: 042
     Dates: start: 20190514, end: 20190827
  4. TYLENOL [Concomitant]
     Active Substance: ACETAMINOPHEN
     Indication: PAIN
     Dosage: 325 MG, Q4H AS NEEDED
     Route: 048
     Dates: start: 20180101
  5. PREDNISONE. [Concomitant]
     Active Substance: PREDNISONE
     Indication: DYSPNOEA
     Dosage: 20 MG, QD
     Route: 048
     Dates: start: 20190806

REACTIONS (3)
  - Immune-mediated myocarditis [Unknown]
  - Autoimmune pericarditis [Unknown]
  - Pleural effusion [Unknown]

NARRATIVE: CASE EVENT DATE: 20190905
